FAERS Safety Report 18453154 (Version 1)
Quarter: 2020Q4

REPORT INFORMATION
  Report Type: Spontaneous
  Country: US (occurrence: US)
  Receive Date: 20201102
  Receipt Date: 20201102
  Transmission Date: 20210114
  Serious: Yes (Disabling)
  Sender: FDA-Public Use
  Company Number: None

PATIENT
  Age: 79 Year
  Sex: Male
  Weight: 85 kg

DRUGS (12)
  1. EPLERENONE. [Concomitant]
     Active Substance: EPLERENONE
  2. GLIPIZIDE. [Concomitant]
     Active Substance: GLIPIZIDE
  3. LEVOFLOXACIN. [Suspect]
     Active Substance: LEVOFLOXACIN
     Indication: CELLULITIS
     Route: 048
     Dates: start: 20200915, end: 20200922
  4. APIXABAN [Concomitant]
     Active Substance: APIXABAN
  5. EMPAGLIFLOZIN [Concomitant]
     Active Substance: EMPAGLIFLOZIN
  6. CARVEDILOL. [Concomitant]
     Active Substance: CARVEDILOL
  7. METFORMIN [Concomitant]
     Active Substance: METFORMIN HYDROCHLORIDE
  8. FUROSEMIDE. [Concomitant]
     Active Substance: FUROSEMIDE
  9. FERROUS SULFATE. [Concomitant]
     Active Substance: FERROUS SULFATE
  10. FAMOTIDINE. [Concomitant]
     Active Substance: FAMOTIDINE
  11. ENTRESTO [Concomitant]
     Active Substance: SACUBITRIL\VALSARTAN
  12. ATROVASTATIN [Concomitant]
     Active Substance: ATORVASTATIN CALCIUM

REACTIONS (4)
  - Muscle rupture [None]
  - Tendonitis [None]
  - Erythema [None]
  - Arthralgia [None]

NARRATIVE: CASE EVENT DATE: 20200921
